FAERS Safety Report 19054293 (Version 2)
Quarter: 2021Q4

REPORT INFORMATION
  Report Type: Report from Study
  Country: CN (occurrence: None)
  Receive Date: 20210325
  Receipt Date: 20211126
  Transmission Date: 20220303
  Serious: Yes (Hospitalization)
  Sender: FDA-Public Use
  Company Number: CN-ROCHE-2782794

PATIENT
  Age: 61 Year
  Sex: Male
  Weight: 61.3 kg

DRUGS (41)
  1. ENTRECTINIB [Suspect]
     Active Substance: ENTRECTINIB
     Indication: Neoplasm
     Dosage: DATE OF LAST DOSE OF ENTRECTINIB: 22/FEB/2021
     Route: 048
     Dates: start: 20210209, end: 20210223
  2. METOCLOPRAMIDE DIHYDROCHLORIDE [Concomitant]
     Indication: Vomiting
     Dates: start: 20210222, end: 20210223
  3. METOCLOPRAMIDE DIHYDROCHLORIDE [Concomitant]
     Dates: start: 20210225, end: 20210227
  4. DEXTROSE [Concomitant]
     Active Substance: DEXTROSE
     Dates: start: 20210222, end: 20210227
  5. DEXTROSE [Concomitant]
     Active Substance: DEXTROSE
     Dates: start: 20210225, end: 20210307
  6. DEXTROSE [Concomitant]
     Active Substance: DEXTROSE
     Dates: start: 20210225, end: 20210307
  7. DEXTROSE [Concomitant]
     Active Substance: DEXTROSE
     Dates: start: 20210304, end: 20210304
  8. VITAMIN B6 [Concomitant]
     Active Substance: PYRIDOXINE HYDROCHLORIDE
     Dates: start: 20210222, end: 20210227
  9. SODIUM CHLORIDE [Concomitant]
     Active Substance: SODIUM CHLORIDE
     Dates: start: 20210222, end: 20210227
  10. SODIUM CHLORIDE [Concomitant]
     Active Substance: SODIUM CHLORIDE
     Dates: start: 20210222, end: 20210227
  11. MOSAPRIDE CITRATE [Concomitant]
     Active Substance: MOSAPRIDE CITRATE
     Indication: Abdominal pain
     Dates: start: 20210215, end: 20210224
  12. MOSAPRIDE CITRATE [Concomitant]
     Active Substance: MOSAPRIDE CITRATE
     Indication: Vomiting
  13. GRANISETRON [Concomitant]
     Active Substance: GRANISETRON
     Indication: Vomiting
     Dates: start: 20210222, end: 20210228
  14. OXYCODONE AND ACETAMINOPHEN [Concomitant]
     Active Substance: ACETAMINOPHEN\OXYCODONE HYDROCHLORIDE
     Dates: start: 20210131
  15. ILAPRAZOLE [Concomitant]
     Active Substance: ILAPRAZOLE
     Dates: start: 20210225, end: 20210307
  16. RAMOSETRON HYDROCHLORIDE [Concomitant]
     Active Substance: RAMOSETRON HYDROCHLORIDE
     Dates: start: 20210225, end: 20210307
  17. ACETYLCYSTEINE [Concomitant]
     Active Substance: ACETYLCYSTEINE
     Dates: start: 20210225, end: 20210307
  18. PROPACETAMOL HYDROCHLORIDE [Concomitant]
     Active Substance: PROPACETAMOL HYDROCHLORIDE
     Dates: start: 20210225, end: 20210307
  19. ELEMENE [Concomitant]
     Dates: start: 20210225, end: 20210307
  20. POTASSIUM CHLORIDE [Concomitant]
     Active Substance: POTASSIUM CHLORIDE
     Dates: start: 20210225, end: 20210307
  21. POTASSIUM CHLORIDE [Concomitant]
     Active Substance: POTASSIUM CHLORIDE
     Dates: start: 20210225, end: 20210307
  22. AMINO ACIDS, SOURCE UNSPECIFIED [Concomitant]
     Active Substance: AMINO ACIDS, SOURCE UNSPECIFIED
     Dates: start: 20210225, end: 20210307
  23. DEXAMETHASONE SODIUM PHOSPHATE [Concomitant]
     Active Substance: DEXAMETHASONE SODIUM PHOSPHATE
     Dates: start: 20210225, end: 20210307
  24. MANNITOL [Concomitant]
     Active Substance: MANNITOL
     Dates: start: 20210225, end: 20210307
  25. FENTANYL TRANSDERMAL SYSTEM [Concomitant]
     Active Substance: FENTANYL
     Dates: start: 20210225, end: 20210225
  26. FENTANYL TRANSDERMAL SYSTEM [Concomitant]
     Active Substance: FENTANYL
     Dates: start: 20210304, end: 20210304
  27. FENTANYL TRANSDERMAL SYSTEM [Concomitant]
     Active Substance: FENTANYL
     Dates: start: 20210307
  28. COMPOUND SODIUM ACETATE RINGER^S [Concomitant]
     Dates: start: 20210226, end: 20210226
  29. COMPOUND SODIUM ACETATE RINGER^S [Concomitant]
     Dates: start: 20210302, end: 20210305
  30. ALPRAZOLAM [Concomitant]
     Active Substance: ALPRAZOLAM
     Dates: start: 20210226
  31. LACTULOSE [Concomitant]
     Active Substance: LACTULOSE
     Dates: start: 20210228, end: 20210228
  32. LACTULOSE [Concomitant]
     Active Substance: LACTULOSE
     Dates: start: 20210304, end: 20210304
  33. ALBUMIN HUMAN [Concomitant]
     Active Substance: ALBUMIN HUMAN
     Dates: start: 20210302, end: 20210303
  34. ALBUMIN HUMAN [Concomitant]
     Active Substance: ALBUMIN HUMAN
     Dates: start: 20210305, end: 20210307
  35. COMPOUND CHLORHEXIDINE GARGLE [Concomitant]
     Dates: start: 20210302, end: 20210302
  36. TORSEMIDE [Concomitant]
     Active Substance: TORSEMIDE
     Dates: start: 20210304, end: 20210304
  37. SPIRONOLACTONE [Concomitant]
     Active Substance: SPIRONOLACTONE
     Dates: start: 20210304, end: 20210308
  38. FUROSEMIDE [Concomitant]
     Active Substance: FUROSEMIDE
     Dates: start: 20210305, end: 20210307
  39. LEVOTHYROXINE SODIUM [Concomitant]
     Active Substance: LEVOTHYROXINE SODIUM
     Dates: start: 20210307
  40. ILAPRAZOLE [Concomitant]
     Active Substance: ILAPRAZOLE
     Dates: start: 20210307
  41. THYMOPENTIN [Concomitant]
     Active Substance: THYMOPENTIN
     Dates: start: 20210225, end: 20210308

REACTIONS (2)
  - Malaise [Recovered/Resolved]
  - Decreased appetite [Recovered/Resolved]

NARRATIVE: CASE EVENT DATE: 20210209
